FAERS Safety Report 12085932 (Version 1)
Quarter: 2016Q1

REPORT INFORMATION
  Report Type: Spontaneous
  Country: IL (occurrence: IL)
  Receive Date: 20160217
  Receipt Date: 20160217
  Transmission Date: 20160526
  Serious: Yes (Other)
  Sender: FDA-Public Use
  Company Number: IL-PFIZER INC-2016096823

PATIENT
  Age: 79 Year
  Sex: Male

DRUGS (3)
  1. METHOTREXATE SODIUM. [Suspect]
     Active Substance: METHOTREXATE SODIUM
     Dosage: UNK
     Dates: start: 2010, end: 2014
  2. SULFASALAZINE. [Suspect]
     Active Substance: SULFASALAZINE
  3. METHOTREXATE SODIUM. [Suspect]
     Active Substance: METHOTREXATE SODIUM
     Dosage: UNK

REACTIONS (8)
  - Hypoalbuminaemia [Unknown]
  - Leukopenia [Unknown]
  - Pancytopenia [Unknown]
  - Neutropenia [Unknown]
  - Osteoporotic fracture [Unknown]
  - Arthritis [Unknown]
  - Pyrexia [Unknown]
  - Felty^s syndrome [Unknown]

NARRATIVE: CASE EVENT DATE: 2009
